FAERS Safety Report 7828300-3 (Version None)
Quarter: 2011Q4

REPORT INFORMATION
  Report Type: 
  Country: None (occurrence: None)
  Receive Date: 20111020
  Receipt Date: 20111014
  Transmission Date: 20120403
  Serious: No
  Sender: FDA-Public Use
  Company Number: US-PFIZER INC-2011137160

PATIENT
  Sex: Female

DRUGS (1)
  1. PRISTIQ [Suspect]
     Dosage: UNK
     Route: 048

REACTIONS (7)
  - HEADACHE [None]
  - VOMITING [None]
  - POLLAKIURIA [None]
  - GASTROENTERITIS [None]
  - NAUSEA [None]
  - MALAISE [None]
  - BLOOD PRESSURE INCREASED [None]
